FAERS Safety Report 4810032-7 (Version None)
Quarter: 2005Q4

REPORT INFORMATION
  Report Type: 
  Country: None (occurrence: None)
  Receive Date: 20051026
  Receipt Date: 20051012
  Transmission Date: 20060501
  Serious: Yes (Other)
  Sender: FDA-Public Use
  Company Number: 200512972JP

PATIENT
  Age: 0 Month
  Sex: 0

DRUGS (3)
  1. CLAFORAN [Suspect]
     Indication: C-REACTIVE PROTEIN INCREASED
  2. CLAFORAN [Suspect]
     Indication: WHITE BLOOD CELL COUNT INCREASED
  3. FOSFOMYCIN [Suspect]
     Indication: ESCHERICHIA INFECTION

REACTIONS (2)
  - DIARRHOEA [None]
  - GASTROENTERITIS STAPHYLOCOCCAL [None]
